FAERS Safety Report 9546492 (Version 2)
Quarter: 2013Q4

REPORT INFORMATION
  Report Type: Spontaneous
  Country: US (occurrence: US)
  Receive Date: 20130923
  Receipt Date: 20131001
  Transmission Date: 20140711
  Serious: Yes (Disabling)
  Sender: FDA-Public Use
  Company Number: US-ROCHE-1279527

PATIENT
  Age: 70 Year
  Sex: Female

DRUGS (3)
  1. LUCENTIS [Suspect]
     Indication: RETINAL NEOVASCULARISATION
     Route: 050
     Dates: start: 20121127
  2. LUCENTIS [Suspect]
     Indication: PATHOLOGIC MYOPIA
     Route: 050
     Dates: start: 20130329
  3. XALATAN [Concomitant]

REACTIONS (1)
  - Cataract [Not Recovered/Not Resolved]
